FAERS Safety Report 25552734 (Version 2)
Quarter: 2025Q3

REPORT INFORMATION
  Report Type: Report from Study
  Country: US (occurrence: US)
  Receive Date: 20250715
  Receipt Date: 20250916
  Transmission Date: 20251020
  Serious: Yes (Hospitalization, Other)
  Sender: BEIGENE
  Company Number: US-BEIGENE-BGN-2025-005279

PATIENT
  Age: 79 Year
  Weight: 80.272 kg

DRUGS (36)
  1. BRUKINSA [Suspect]
     Active Substance: ZANUBRUTINIB
     Indication: Chronic lymphocytic leukaemia
     Dosage: 80 MILLIGRAM, BID
  2. BRUKINSA [Suspect]
     Active Substance: ZANUBRUTINIB
     Dosage: 160 MILLIGRAM, BID
  3. LEVOTHYROXINE [Concomitant]
     Active Substance: LEVOTHYROXINE
  4. FAMOTIDINE [Concomitant]
     Active Substance: FAMOTIDINE
  5. CLARITIN [Concomitant]
     Active Substance: LORATADINE
  6. ZORYVE [Concomitant]
     Active Substance: ROFLUMILAST
  7. VITAMINS [Concomitant]
     Active Substance: VITAMINS
  8. VITAMIN D [Concomitant]
     Active Substance: VITAMIN D NOS
  9. ATORVASTATIN [Concomitant]
     Active Substance: ATORVASTATIN
  10. GABAPENTIN [Concomitant]
     Active Substance: GABAPENTIN
  11. ACIDOPHILUS [Concomitant]
     Active Substance: LACTOBACILLUS ACIDOPHILUS
  12. MUPIROCIN [Concomitant]
     Active Substance: MUPIROCIN
  13. FLONASE [Concomitant]
     Active Substance: FLUTICASONE PROPIONATE
  14. SYSTANE (HYPROMELLOSE 2910 (4000 MPA.S)) [Concomitant]
     Active Substance: HYPROMELLOSE 2910 (4000 MPA.S)
  15. TYLENOL [Concomitant]
     Active Substance: ACETAMINOPHEN
  16. MOTRIN [Concomitant]
     Active Substance: IBUPROFEN
  17. GAS-X [Concomitant]
     Active Substance: DIMETHICONE
  18. PHENAZOPYRIDINE [Concomitant]
     Active Substance: PHENAZOPYRIDINE
  19. CEFEPIME [Concomitant]
     Active Substance: CEFEPIME HYDROCHLORIDE
  20. POTASSIUM [Concomitant]
     Active Substance: POTASSIUM
  21. KETOCONAZOLE [Concomitant]
     Active Substance: KETOCONAZOLE
  22. DESONIDE [Concomitant]
     Active Substance: DESONIDE
  23. LAMISIL [Concomitant]
     Active Substance: TERBINAFINE HYDROCHLORIDE
  24. Calcipotriol;Fluorouracil [Concomitant]
  25. PIMECROLIMUS [Concomitant]
     Active Substance: PIMECROLIMUS
  26. TRIAMCINOLONE [Concomitant]
     Active Substance: TRIAMCINOLONE
  27. HYDROCORTISONE [Concomitant]
     Active Substance: HYDROCORTISONE
  28. GENTAMICIN [Concomitant]
     Active Substance: GENTAMICIN
  29. LOSARTAN [Concomitant]
     Active Substance: LOSARTAN
  30. VALTREX [Concomitant]
     Active Substance: VALACYCLOVIR HYDROCHLORIDE
  31. EFUDEX [Concomitant]
     Active Substance: FLUOROURACIL
  32. AMOXICILLIN [Concomitant]
     Active Substance: AMOXICILLIN
  33. CEFDINIR [Concomitant]
     Active Substance: CEFDINIR
  34. AUGMENTIN [Concomitant]
     Active Substance: AMOXICILLIN\CLAVULANATE POTASSIUM
  35. GEMTESA [Concomitant]
     Active Substance: VIBEGRON
  36. PREMARIN [Concomitant]
     Active Substance: ESTROGENS, CONJUGATED

REACTIONS (17)
  - Troponin increased [Not Recovered/Not Resolved]
  - Blood pressure increased [Not Recovered/Not Resolved]
  - Urinary tract infection enterococcal [Not Recovered/Not Resolved]
  - Palpitations [Not Recovered/Not Resolved]
  - Chest discomfort [Recovering/Resolving]
  - Contusion [Recovering/Resolving]
  - Dermatitis [Not Recovered/Not Resolved]
  - Full blood count increased [Recovering/Resolving]
  - Cystitis [Not Recovered/Not Resolved]
  - Back pain [Not Recovered/Not Resolved]
  - Arthralgia [Recovering/Resolving]
  - Nocturia [Not Recovered/Not Resolved]
  - Fatigue [Not Recovered/Not Resolved]
  - Arthropod sting [Not Recovered/Not Resolved]
  - White blood cell count abnormal [Recovering/Resolving]
  - Lymphocyte count increased [Recovering/Resolving]
  - Product dose omission issue [Unknown]
